FAERS Safety Report 12583776 (Version 3)
Quarter: 2016Q3

REPORT INFORMATION
  Report Type: Spontaneous
  Country: US (occurrence: US)
  Receive Date: 20160722
  Receipt Date: 20160907
  Transmission Date: 20161109
  Serious: Yes (Hospitalization, Other)
  Sender: FDA-Public Use
  Company Number: US-SAOL THERAPEUTICS-2016SAO00123

PATIENT
  Age: 42 Year
  Sex: Female
  Weight: 58.96 kg

DRUGS (8)
  1. VALIUM [Concomitant]
     Active Substance: DIAZEPAM
     Dosage: 1 TABLETS, 1X/DAY
     Route: 048
     Dates: start: 20160516
  2. COMPOUNDED BACLOFEN [Suspect]
     Active Substance: BACLOFEN
     Indication: MUSCLE SPASTICITY
     Dosage: 1301.5 ?G, \DAY
     Route: 037
  3. MORPHINE [Suspect]
     Active Substance: MORPHINE
     Dosage: 4.881 MG, \DAY
     Route: 037
  4. GABAPENTIN. [Concomitant]
     Active Substance: GABAPENTIN
     Dosage: 1 TABLETS, 3X/DAY
     Dates: start: 20150430
  5. LAMICTAL [Concomitant]
     Active Substance: LAMOTRIGINE
     Dosage: 1 TABLETS, 1X/DAY
     Route: 048
  6. IBUPROFEN. [Concomitant]
     Active Substance: IBUPROFEN
     Dosage: 1 TABLETS, AS NEEDED
  7. NORCO [Concomitant]
     Active Substance: ACETAMINOPHEN\HYDROCODONE BITARTRATE
     Dosage: 1 TABLETS, AS NEEDED
     Dates: start: 20150923
  8. HYDROCHLOROTHIAZIDE. [Concomitant]
     Active Substance: HYDROCHLOROTHIAZIDE
     Dosage: 1 TABLETS, 1X/DAY
     Route: 048

REACTIONS (13)
  - Foot deformity [Unknown]
  - Drug withdrawal syndrome [Recovering/Resolving]
  - Back pain [Unknown]
  - Bunion operation [Unknown]
  - Gait disturbance [Unknown]
  - Irritability [Unknown]
  - Tenotomy [Unknown]
  - Limb asymmetry [Unknown]
  - Paraplegia [Not Recovered/Not Resolved]
  - Rheumatoid arthritis [Not Recovered/Not Resolved]
  - Pain [Recovering/Resolving]
  - Device failure [Recovered/Resolved]
  - Knee deformity [Unknown]

NARRATIVE: CASE EVENT DATE: 2008
